FAERS Safety Report 5160357-3 (Version None)
Quarter: 2006Q4

REPORT INFORMATION
  Report Type: 
  Country: None (occurrence: None)
  Receive Date: 20061120
  Receipt Date: 20061113
  Transmission Date: 20070319
  Serious: Yes (Death, Other)
  Sender: FDA-Public Use
  Company Number: GXKR2006US07288

PATIENT
  Age: 59 Year
  Sex: Female

DRUGS (1)
  1. NORTRIPTYLINE HCL [Suspect]
     Dosage: 400 MG, QHS,

REACTIONS (13)
  - ACCIDENTAL OVERDOSE [None]
  - AGITATION [None]
  - BLOOD CREATINE INCREASED [None]
  - BLOOD PRESSURE SYSTOLIC INCREASED [None]
  - BLOOD UREA INCREASED [None]
  - CARDIAC DISORDER [None]
  - DRUG LEVEL INCREASED [None]
  - ELECTROCARDIOGRAM QRS COMPLEX PROLONGED [None]
  - FALL [None]
  - HEART RATE INCREASED [None]
  - HIP FRACTURE [None]
  - SOMNOLENCE [None]
  - THERAPY NON-RESPONDER [None]
